FAERS Safety Report 19216383 (Version 1)
Quarter: 2021Q2

REPORT INFORMATION
  Report Type: Spontaneous
  Country: US (occurrence: US)
  Receive Date: 20210504
  Receipt Date: 20210504
  Transmission Date: 20210717
  Serious: Yes (Hospitalization, Disabling, Other)
  Sender: FDA-Public Use
  Company Number: None

PATIENT
  Age: 21 Year
  Sex: Female

DRUGS (1)
  1. OLANZAPINE. [Suspect]
     Active Substance: OLANZAPINE
     Indication: MENTAL DISORDER
     Route: 048

REACTIONS (13)
  - Faeces hard [None]
  - Abdominal distension [None]
  - Amenorrhoea [None]
  - Slow speech [None]
  - Gastrointestinal disorder [None]
  - Withdrawal catatonia [None]
  - Anal incontinence [None]
  - Thyroid disorder [None]
  - Bradykinesia [None]
  - Psychotic disorder [None]
  - Bladder disorder [None]
  - Swelling [None]
  - Urinary incontinence [None]

NARRATIVE: CASE EVENT DATE: 20210329
